FAERS Safety Report 20513751 (Version 1)
Quarter: 2022Q1

REPORT INFORMATION
  Report Type: Spontaneous
  Country: US (occurrence: None)
  Receive Date: 20220224
  Receipt Date: 20220224
  Transmission Date: 20220423
  Serious: No
  Sender: FDA-Public Use
  Company Number: None

PATIENT
  Sex: Male

DRUGS (1)
  1. METHOTREXATE [Suspect]
     Active Substance: METHOTREXATE
     Indication: Rheumatoid arthritis
     Dosage: 20 MG EVERY WEEK ORAL??TO ON HOLD?
     Route: 048
     Dates: start: 201508

REACTIONS (2)
  - Hepatic enzyme increased [None]
  - Therapy interrupted [None]
